FAERS Safety Report 24319347 (Version 1)
Quarter: 2024Q3

REPORT INFORMATION
  Report Type: Spontaneous
  Country: PR (occurrence: PR)
  Receive Date: 20240914
  Receipt Date: 20240914
  Transmission Date: 20241017
  Serious: No
  Sender: ABBVIE
  Company Number: PR-ABBVIE-5909386

PATIENT
  Sex: Male

DRUGS (1)
  1. RINVOQ [Suspect]
     Active Substance: UPADACITINIB
     Indication: Inflammatory bowel disease
     Dosage: STRENGTH-15 MG?THREE TABLETS
     Route: 048

REACTIONS (1)
  - Product dispensing error [Recovered/Resolved]
